FAERS Safety Report 23037233 (Version 1)
Quarter: 2023Q4

REPORT INFORMATION
  Report Type: Spontaneous
  Country: LU (occurrence: LU)
  Receive Date: 20231006
  Receipt Date: 20231006
  Transmission Date: 20240110
  Serious: Yes (Other)
  Sender: FDA-Public Use
  Company Number: None

PATIENT
  Age: 39 Year
  Sex: Male
  Weight: 95 kg

DRUGS (4)
  1. IBUPROFEN [Suspect]
     Active Substance: IBUPROFEN
     Indication: Headache
     Route: 048
     Dates: end: 20230202
  2. ACETAMINOPHEN [Suspect]
     Active Substance: ACETAMINOPHEN
     Indication: Headache
     Route: 048
     Dates: end: 20230202
  3. ETORICOXIB [Suspect]
     Active Substance: ETORICOXIB
     Indication: Headache
     Route: 048
     Dates: end: 20230202
  4. LYRICA [Concomitant]
     Active Substance: PREGABALIN
     Indication: Headache
     Route: 048
     Dates: end: 20230202

REACTIONS (1)
  - Medication overuse headache [Not Recovered/Not Resolved]
